FAERS Safety Report 18507107 (Version 1)
Quarter: 2020Q4

REPORT INFORMATION
  Report Type: Spontaneous
  Country: US (occurrence: US)
  Receive Date: 20201115
  Receipt Date: 20201115
  Transmission Date: 20210114
  Serious: No
  Sender: FDA-Public Use
  Company Number: None

PATIENT
  Age: 66 Year
  Sex: Female
  Weight: 69.75 kg

DRUGS (6)
  1. LEVOTHYROXINE. [Concomitant]
     Active Substance: LEVOTHYROXINE
  2. AMLODIPINE [Concomitant]
     Active Substance: AMLODIPINE BESYLATE
  3. NAPROSYN [Concomitant]
     Active Substance: NAPROXEN
  4. COENZYME Q10 [Suspect]
     Active Substance: DIETARY SUPPLEMENT\UBIDECARENONE
  5. ALBUTEROL SULFATE. [Suspect]
     Active Substance: ALBUTEROL SULFATE
     Indication: ASTHMA
     Dosage: OTHER STRENGTH:MCG;QUANTITY:2 PUFF(S);?
     Route: 055
     Dates: start: 20200916, end: 20201102
  6. MAGNESIUM [Concomitant]
     Active Substance: MAGNESIUM

REACTIONS (5)
  - Cough [None]
  - Product taste abnormal [None]
  - Complication associated with device [None]
  - Manufacturing issue [None]
  - Throat irritation [None]

NARRATIVE: CASE EVENT DATE: 20201001
